FAERS Safety Report 25289098 (Version 3)
Quarter: 2025Q2

REPORT INFORMATION
  Report Type: Spontaneous
  Country: IL (occurrence: IL)
  Receive Date: 20250509
  Receipt Date: 20250530
  Transmission Date: 20250716
  Serious: Yes (Other)
  Sender: ELI LILLY AND COMPANY
  Company Number: IL-ELI_LILLY_AND_COMPANY-IL202504024910

PATIENT
  Age: 26 Year
  Sex: Female

DRUGS (1)
  1. MOUNJARO [Suspect]
     Active Substance: TIRZEPATIDE
     Indication: Weight control
     Route: 065
     Dates: start: 20250425

REACTIONS (18)
  - Syncope [Unknown]
  - Chills [Unknown]
  - Headache [Unknown]
  - Muscular weakness [Unknown]
  - Paraesthesia [Unknown]
  - Vomiting [Recovered/Resolved]
  - Nausea [Recovered/Resolved]
  - Heart rate increased [Unknown]
  - Sensitive skin [Unknown]
  - C-reactive protein increased [Unknown]
  - Somnolence [Unknown]
  - Allodynia [Unknown]
  - Dysuria [Unknown]
  - Viral infection [Unknown]
  - Disturbance in attention [Unknown]
  - Fatigue [Unknown]
  - Dyspepsia [Unknown]
  - Asthenia [Unknown]

NARRATIVE: CASE EVENT DATE: 20250401
